FAERS Safety Report 8821099 (Version 1)
Quarter: 2012Q4

REPORT INFORMATION
  Report Type: 
  Country: US (occurrence: US)
  Receive Date: 20121002
  Receipt Date: 20121002
  Transmission Date: 20130627
  Serious: Yes (Death)
  Sender: FDA-Public Use
  Company Number: US-GLAXOSMITHKLINE-A0995470A

PATIENT
  Sex: Male

DRUGS (7)
  1. PROMACTA [Suspect]
     Indication: PRODUCT USED FOR UNKNOWN INDICATION
     Dosage: 75MG See dosage text
     Route: 048
  2. ALPHA LIPOIC ACID [Concomitant]
  3. VITAMIN D3 [Concomitant]
  4. CALCIUM 600MG [Concomitant]
  5. FOLIC ACID [Concomitant]
  6. LYSINE [Concomitant]
  7. VITAMIN B6 [Concomitant]

REACTIONS (2)
  - Death [Fatal]
  - Overdose [Unknown]
